FAERS Safety Report 20021327 (Version 2)
Quarter: 2022Q1

REPORT INFORMATION
  Report Type: Spontaneous
  Country: TR (occurrence: TR)
  Receive Date: 20211101
  Receipt Date: 20220209
  Transmission Date: 20220423
  Serious: Yes (Disabling, Other)
  Sender: FDA-Public Use
  Company Number: TR-BIOMARINAP-TR-2021-139260

PATIENT
  Age: 17 Year
  Sex: Female
  Weight: 15.3 kg

DRUGS (1)
  1. NAGLAZYME [Suspect]
     Active Substance: GALSULFASE
     Indication: Mucopolysaccharidosis VI
     Dosage: 1 MILLIGRAM/KILOGRAM, QW
     Route: 042
     Dates: start: 200911

REACTIONS (7)
  - Conductive deafness [Recovering/Resolving]
  - Spinal cord compression [Unknown]
  - Immobile [Unknown]
  - Cardiac valve disease [Unknown]
  - Skull malformation [Unknown]
  - Spinal disorder [Unknown]
  - Urinary incontinence [Unknown]

NARRATIVE: CASE EVENT DATE: 20110401
